FAERS Safety Report 23539619 (Version 1)
Quarter: 2024Q1

REPORT INFORMATION
  Report Type: Spontaneous
  Country: US (occurrence: US)
  Receive Date: 20240219
  Receipt Date: 20240219
  Transmission Date: 20240410
  Serious: Yes (Life-Threatening, Hospitalization, Other)
  Sender: FDA-Public Use
  Company Number: US-BRACCO-2023US06718

PATIENT
  Age: 86 Year
  Sex: Male

DRUGS (3)
  1. IOPAMIDOL [Suspect]
     Active Substance: IOPAMIDOL
     Indication: Angiogram
     Dosage: 90 ML, SINGLE
     Route: 042
  2. POTASSIUM [Concomitant]
     Active Substance: POTASSIUM
  3. OXYGEN [Concomitant]
     Active Substance: OXYGEN

REACTIONS (2)
  - Nephropathy [Recovered/Resolved]
  - Acute kidney injury [Recovered/Resolved]
